FAERS Safety Report 7063465-5 (Version None)
Quarter: 2010Q4

REPORT INFORMATION
  Report Type: 
  Country: None (occurrence: None)
  Receive Date: 20101026
  Receipt Date: 20100308
  Transmission Date: 20110411
  Serious: No
  Sender: FDA-Public Use
  Company Number: US-ABBOTT-10P-163-0628358-00

PATIENT
  Sex: Female
  Weight: 67.646 kg

DRUGS (13)
  1. LUPRON DEPOT [Suspect]
     Indication: ENDOMETRIOSIS
     Route: 030
     Dates: start: 20090801
  2. PROVENTIL [Concomitant]
     Indication: PRODUCT USED FOR UNKNOWN INDICATION
     Route: 055
  3. HYDROCHLOROTHIAZIDE [Concomitant]
     Indication: HYPERTENSION
     Dosage: UNKNOWN DOSE
     Dates: start: 20100105
  4. ALLEGRA [Concomitant]
     Indication: HYPERSENSITIVITY
     Dosage: DAILY
  5. AGYESTIN [Concomitant]
     Indication: HOT FLUSH
     Route: 048
     Dates: start: 20090901
  6. CALTRATE D [Concomitant]
     Indication: OSTEOPOROSIS PROPHYLAXIS
  7. IRON [Concomitant]
     Indication: SUPPLEMENTATION THERAPY
     Dates: start: 20090901, end: 20090901
  8. COLACE [Concomitant]
     Indication: CONSTIPATION PROPHYLAXIS
     Dates: start: 20090901, end: 20090901
  9. VITAMIN E [Concomitant]
     Indication: PRODUCT USED FOR UNKNOWN INDICATION
     Route: 048
  10. ASCORBIC ACID [Concomitant]
     Indication: PRODUCT USED FOR UNKNOWN INDICATION
     Route: 048
  11. VITAMIN B COMPLEX CAP [Concomitant]
     Indication: PRODUCT USED FOR UNKNOWN INDICATION
     Route: 048
  12. MULTIVITE [Concomitant]
     Indication: PRODUCT USED FOR UNKNOWN INDICATION
     Route: 048
  13. FISH OIL [Concomitant]
     Indication: PRODUCT USED FOR UNKNOWN INDICATION
     Dates: end: 20100101

REACTIONS (5)
  - BLOOD OESTROGEN DECREASED [None]
  - CAPILLARY FRAGILITY [None]
  - SINUS CONGESTION [None]
  - SINUSITIS [None]
  - VAGINAL HAEMORRHAGE [None]
